FAERS Safety Report 6826266-6 (Version None)
Quarter: 2010Q3

REPORT INFORMATION
  Report Type: 
  Country: None (occurrence: None)
  Receive Date: 20100709
  Receipt Date: 20100628
  Transmission Date: 20110219
  Serious: Yes (Hospitalization, Other)
  Sender: FDA-Public Use
  Company Number: PHHY2010FR42921

PATIENT
  Sex: Female

DRUGS (6)
  1. LESCOL [Suspect]
     Indication: DYSLIPIDAEMIA
     Dosage: 40 MG, QD
     Route: 048
     Dates: end: 20091211
  2. ATENOLOL [Suspect]
     Indication: HYPERTENSION
     Dosage: 80 MG, QD
     Route: 048
     Dates: start: 20060101, end: 20091211
  3. ATENOLOL [Suspect]
     Dosage: UNK
     Route: 048
     Dates: start: 20100106, end: 20100115
  4. COVERSYL [Suspect]
     Dosage: 5 MG, QD
     Route: 048
     Dates: start: 19990101, end: 20091211
  5. COVERSYL [Suspect]
     Dosage: UNK
     Dates: start: 20100106, end: 20100115
  6. LEVOTHYROXINE SODIUM [Concomitant]
     Indication: CONGENITAL HYPOTHYROIDISM
     Dosage: 25 MCG
     Route: 048
     Dates: start: 20080101

REACTIONS (9)
  - C-REACTIVE PROTEIN INCREASED [None]
  - CHOLESTASIS [None]
  - CUTANEOUS VASCULITIS [None]
  - CYTOLYTIC HEPATITIS [None]
  - ERYTHEMA MULTIFORME [None]
  - INFLAMMATION [None]
  - PROTEINURIA [None]
  - RED BLOOD CELL SEDIMENTATION RATE INCREASED [None]
  - URTICARIA [None]
